FAERS Safety Report 5221257-3 (Version None)
Quarter: 2007Q1

REPORT INFORMATION
  Report Type: 
  Country: None (occurrence: None)
  Receive Date: 20070126
  Receipt Date: 20070115
  Transmission Date: 20070707
  Serious: Yes (Other)
  Sender: FDA-Public Use
  Company Number: FR-PFIZER INC-2006122794

PATIENT
  Age: 52 Year
  Sex: Female
  Weight: 68 kg

DRUGS (6)
  1. LYRICA [Suspect]
     Indication: RADICULOPATHY
     Route: 048
     Dates: start: 20060809, end: 20060816
  2. MEDIATOR [Concomitant]
     Dosage: DAILY DOSE:300MG
     Route: 048
  3. DAFALGAN [Concomitant]
     Dosage: DAILY DOSE:1400MG
     Route: 048
  4. CONTRAMAL [Concomitant]
     Dosage: DAILY DOSE:200MG
     Route: 048
  5. LEVOCETIRIZINE DIHYDROCHLORIDE [Concomitant]
     Route: 048
  6. STRUCTUM [Concomitant]
     Dosage: DAILY DOSE:1000MG
     Route: 048

REACTIONS (2)
  - DISORIENTATION [None]
  - HALLUCINATION, VISUAL [None]
